FAERS Safety Report 12452185 (Version 1)
Quarter: 2016Q2

REPORT INFORMATION
  Report Type: Spontaneous
  Country: AT (occurrence: AT)
  Receive Date: 20160609
  Receipt Date: 20160609
  Transmission Date: 20160815
  Serious: Yes (Other)
  Sender: FDA-Public Use
  Company Number: AT-JNJFOC-20160604348

PATIENT
  Age: 49 Year
  Sex: Male
  Weight: 73.05 kg

DRUGS (19)
  1. CONCOR COR [Concomitant]
     Active Substance: BISOPROLOL FUMARATE
     Dosage: STARTED SINCE MONTHS
     Route: 065
  2. VALDOXAN [Suspect]
     Active Substance: AGOMELATINE
     Indication: PRODUCT USED FOR UNKNOWN INDICATION
     Route: 065
     Dates: start: 20160120, end: 20160208
  3. RIVOTRIL [Concomitant]
     Active Substance: CLONAZEPAM
     Dosage: STARTED SINCE WEEKS
     Route: 065
     Dates: end: 20160119
  4. RISPERDAL [Suspect]
     Active Substance: RISPERIDONE
     Indication: PRODUCT USED FOR UNKNOWN INDICATION
     Dates: start: 20160229, end: 20160229
  5. VALDOXAN [Suspect]
     Active Substance: AGOMELATINE
     Indication: PRODUCT USED FOR UNKNOWN INDICATION
     Route: 065
     Dates: start: 20160211
  6. PAROXAT [Concomitant]
     Active Substance: PAROXETINE HYDROCHLORIDE
     Route: 065
     Dates: start: 20160223, end: 20160228
  7. MAPROTILINE HYDROCHLORIDE. [Concomitant]
     Active Substance: MAPROTILINE HYDROCHLORIDE
     Route: 065
     Dates: start: 20160201, end: 20160207
  8. VALDOXAN [Suspect]
     Active Substance: AGOMELATINE
     Indication: PRODUCT USED FOR UNKNOWN INDICATION
     Route: 065
     Dates: end: 20160107
  9. RIVOTRIL [Concomitant]
     Active Substance: CLONAZEPAM
     Route: 065
     Dates: start: 20160120
  10. MAPROTILINE HYDROCHLORIDE. [Concomitant]
     Active Substance: MAPROTILINE HYDROCHLORIDE
     Route: 065
     Dates: start: 20160211, end: 20160214
  11. LYRICA [Concomitant]
     Active Substance: PREGABALIN
     Dosage: STARTED SINCE MONTHS
     Route: 065
  12. MAPROTILINE HYDROCHLORIDE. [Concomitant]
     Active Substance: MAPROTILINE HYDROCHLORIDE
     Route: 065
     Dates: start: 20160120, end: 20160131
  13. CALCIUM GLYCEROPHOSPHATE\CELLULOSE\POLYETHYLENE GLYCOL\SACCHARIN SODIUM\SODIUM HYDROXIDE\SODIUM LAURYL SULFATE\SODIUM MAGNESIUM SILICATE\SODIUM MONOFLUOROPHOSPHATE\SORBITOL\WATER [Concomitant]
     Active Substance: CALCIUM GLYCEROPHOSPHATE\POLYETHYLENE GLYCOLS\POWDERED CELLULOSE\SACCHARIN SODIUM DIHYDRATE\SODIUM HYDROXIDE\SODIUM LAURYL SULFATE\SODIUM MAGNESIUM SILICATE\SODIUM MONOFLUOROPHOSPHATE\SORBITOL\WATER
     Dosage: 1 SACHET PER DAY
     Route: 065
     Dates: start: 20160127
  14. ZYPREXA [Concomitant]
     Active Substance: OLANZAPINE
     Route: 065
     Dates: start: 20160304
  15. ZYPREXA [Concomitant]
     Active Substance: OLANZAPINE
     Route: 065
     Dates: end: 20160214
  16. VALDOXAN [Suspect]
     Active Substance: AGOMELATINE
     Indication: PRODUCT USED FOR UNKNOWN INDICATION
     Route: 065
     Dates: start: 20160108, end: 20160119
  17. ASTONIN H [Concomitant]
     Route: 065
     Dates: start: 20160224, end: 20160228
  18. MAPROTILINE HYDROCHLORIDE. [Concomitant]
     Active Substance: MAPROTILINE HYDROCHLORIDE
     Route: 065
     Dates: start: 20160215
  19. MAPROTILINE HYDROCHLORIDE. [Concomitant]
     Active Substance: MAPROTILINE HYDROCHLORIDE
     Route: 065
     Dates: start: 20160208, end: 20160210

REACTIONS (1)
  - Restless legs syndrome [Recovered/Resolved]

NARRATIVE: CASE EVENT DATE: 20160229
